FAERS Safety Report 6875554-6 (Version None)
Quarter: 2010Q3

REPORT INFORMATION
  Report Type: 
  Country: None (occurrence: None)
  Receive Date: 20100727
  Receipt Date: 20070702
  Transmission Date: 20110219
  Serious: Yes (Hospitalization, Other)
  Sender: FDA-Public Use
  Company Number: US-PFIZER INC-2006129204

PATIENT
  Sex: Female
  Weight: 130.6 kg

DRUGS (3)
  1. CELEBREX [Suspect]
     Indication: ARTHRITIS
     Dates: start: 19990301, end: 20021001
  2. BEXTRA [Suspect]
     Indication: ARTHRITIS
     Dates: start: 20031201
  3. VIOXX [Suspect]
     Indication: ARTHRITIS
     Dates: start: 20021013

REACTIONS (3)
  - DEEP VEIN THROMBOSIS [None]
  - MYOCARDIAL INFARCTION [None]
  - PULMONARY EMBOLISM [None]
